FAERS Safety Report 5361942-6 (Version None)
Quarter: 2007Q2

REPORT INFORMATION
  Report Type: 
  Country: None (occurrence: None)
  Receive Date: 20070619
  Receipt Date: 20070613
  Transmission Date: 20071010
  Serious: Yes (Hospitalization)
  Sender: FDA-Public Use
  Company Number: NL-AVENTIS-200712960EU

PATIENT
  Age: 72 Year
  Sex: Male

DRUGS (22)
  1. ENOXAPARIN SODIUM [Suspect]
     Route: 058
     Dates: start: 20060706, end: 20060718
  2. MORPHINE [Concomitant]
     Dates: start: 20060707, end: 20060707
  3. MORPHINE [Concomitant]
     Dates: start: 20060707, end: 20060709
  4. KYTRIL                             /01178101/ [Concomitant]
     Indication: NAUSEA
     Dates: start: 20060707, end: 20060707
  5. MARCAINE                           /00330101/ [Concomitant]
     Dates: start: 20060707, end: 20060707
  6. BENZODIAZEPINE DERIVATIVES [Concomitant]
     Dates: start: 20060707, end: 20060707
  7. KEFZOL [Concomitant]
     Indication: ANTIBIOTIC PROPHYLAXIS
     Dates: start: 20060707, end: 20060707
  8. PROPOFOL [Concomitant]
     Dates: start: 20060707, end: 20060707
  9. PARACETAMOL [Concomitant]
     Dates: start: 20060707
  10. PARACETAMOL [Concomitant]
     Dates: start: 20060608, end: 20060608
  11. PARACETAMOL [Concomitant]
     Dates: start: 20060710
  12. ASCAL                              /00800002/ [Concomitant]
     Dates: start: 20051001, end: 20060626
  13. METOPROLOL SUCCINATE [Concomitant]
     Indication: HYPERTENSION
     Dates: start: 20050101
  14. LIPITOR [Concomitant]
     Dates: start: 20050101
  15. PLAVIX [Concomitant]
     Dates: start: 20051001, end: 20060629
  16. PLAVIX [Concomitant]
     Dates: start: 20060709
  17. PLAVIX [Concomitant]
     Dates: start: 20051001, end: 20060629
  18. PLAVIX [Concomitant]
     Dates: start: 20060709
  19. TRAMADOL HCL [Concomitant]
     Dates: start: 20060712
  20. TRAMADOL HCL [Concomitant]
     Dates: start: 20060710, end: 20060710
  21. TRAMADOL HCL [Concomitant]
     Dates: start: 20060711, end: 20060711
  22. TEMAZEPAM [Concomitant]
     Indication: SEDATION
     Dates: start: 20060711

REACTIONS (2)
  - HAEMATOMA [None]
  - JOINT EFFUSION [None]
